FAERS Safety Report 15508194 (Version 4)
Quarter: 2019Q3

REPORT INFORMATION
  Report Type: Spontaneous
  Country: BE (occurrence: BE)
  Receive Date: 20181016
  Receipt Date: 20190812
  Transmission Date: 20191004
  Serious: Yes (Death, Hospitalization, Other)
  Sender: FDA-Public Use
  Company Number: BE-ALLERGAN-1849439US

PATIENT
  Sex: Female

DRUGS (9)
  1. CHOLEMED [Concomitant]
  2. AFEBRYL [Concomitant]
     Dosage: UNK
     Route: 065
  3. AMLOR [Concomitant]
     Active Substance: AMLODIPINE BESYLATE
  4. LOORTAN [Concomitant]
     Active Substance: LOSARTAN POTASSIUM
  5. NOBITEN [Concomitant]
     Active Substance: NEBIVOLOL
  6. VENUROTON [Concomitant]
  7. LORMETAZEPAN [Concomitant]
     Active Substance: LORMETAZEPAM
  8. ESCITALOPRAM OXALATE - BP [Suspect]
     Active Substance: ESCITALOPRAM OXALATE
     Indication: DEPRESSED MOOD
     Dosage: 0.5 DF, QD
     Route: 048
     Dates: start: 201004
  9. CARDIOASPERINE [Concomitant]

REACTIONS (6)
  - Mental disorder [Unknown]
  - Loss of consciousness [Unknown]
  - Psychotic disorder [Unknown]
  - Dementia [Unknown]
  - Wrong product administered [Unknown]
  - Death [Fatal]

NARRATIVE: CASE EVENT DATE: 201004
